FAERS Safety Report 13738895 (Version 1)
Quarter: 2017Q3

REPORT INFORMATION
  Report Type: Report from Study
  Country: US (occurrence: US)
  Receive Date: 20170710
  Receipt Date: 20170710
  Transmission Date: 20171127
  Serious: No
  Sender: FDA-Public Use
  Company Number: US-SAOL THERAPEUTICS-2017SAO00675

PATIENT
  Age: 77 Year
  Sex: Male

DRUGS (21)
  1. COMPOUNDED BACLOFEN [Suspect]
     Active Substance: BACLOFEN
     Dosage: 355.38 ?G, \DAY
     Dates: start: 20150716, end: 20150727
  2. COMPOUNDED BACLOFEN [Suspect]
     Active Substance: BACLOFEN
     Dosage: 415.05 ?G, \DAY
     Route: 037
     Dates: start: 20160225
  3. DILAUDID [Suspect]
     Active Substance: HYDROMORPHONE HYDROCHLORIDE
     Dosage: 1.6789 MG, \DAY
     Dates: start: 20150727
  4. CLONIDINE. [Suspect]
     Active Substance: CLONIDINE
     Dosage: 53.96 ?G, \DAY
     Dates: start: 20150727
  5. CLONIDINE. [Suspect]
     Active Substance: CLONIDINE
     Dosage: 118.46 ?G, \DAY
     Dates: start: 20150716, end: 20150727
  6. DILAUDID [Suspect]
     Active Substance: HYDROMORPHONE HYDROCHLORIDE
     Dosage: 2.3058 MG, \DAY
     Route: 037
     Dates: start: 20160225, end: 20160325
  7. COMPOUNDED BACLOFEN [Suspect]
     Active Substance: BACLOFEN
     Dosage: 302.20 ?G, \DAY
     Dates: start: 20150727
  8. DILAUDID [Suspect]
     Active Substance: HYDROMORPHONE HYDROCHLORIDE
     Dosage: 1.9744 MG, \DAY
     Dates: start: 20150716, end: 20150727
  9. DILAUDID [Suspect]
     Active Substance: HYDROMORPHONE HYDROCHLORIDE
     Dosage: 0.7998 MG, \DAY
     Dates: start: 20160325
  10. CLONIDINE. [Suspect]
     Active Substance: CLONIDINE
     Dosage: 63.00 ?G, \DAY
     Route: 037
     Dates: start: 20150716, end: 20150727
  11. COMPOUNDED BACLOFEN [Suspect]
     Active Substance: BACLOFEN
     Dosage: 143.97 ?G, \DAY
     Dates: start: 20160325
  12. CLONIDINE. [Suspect]
     Active Substance: CLONIDINE
     Dosage: 123.67 ?G, \DAY
     Dates: start: 20160325
  13. DILAUDID [Suspect]
     Active Substance: HYDROMORPHONE HYDROCHLORIDE
     Dosage: 2.0612 MG, \DAY
     Dates: start: 20160325
  14. CLONIDINE. [Suspect]
     Active Substance: CLONIDINE
     Dosage: 100.73 ?G, \DAY
     Dates: start: 20150727
  15. DILAUDID [Suspect]
     Active Substance: HYDROMORPHONE HYDROCHLORIDE
     Dosage: 1.0500 MG, \DAY
     Route: 037
     Dates: start: 20150716, end: 20150727
  16. COMPOUNDED BACLOFEN [Suspect]
     Active Substance: BACLOFEN
     Dosage: 371.02 ?G, \DAY
     Dates: start: 20160325
  17. DILAUDID [Suspect]
     Active Substance: HYDROMORPHONE HYDROCHLORIDE
     Dosage: 0.8994 MG, \DAY
     Dates: start: 20150727
  18. CLONIDINE. [Suspect]
     Active Substance: CLONIDINE
     Dosage: 47.99 ?G, \DAY
     Dates: start: 20160325
  19. CLONIDINE. [Suspect]
     Active Substance: CLONIDINE
     Dosage: 138.35 ?G, \DAY
     Route: 037
     Dates: start: 20160225
  20. COMPOUNDED BACLOFEN [Suspect]
     Active Substance: BACLOFEN
     Dosage: 189 ?G, \DAY
     Route: 037
     Dates: start: 20150716, end: 20150727
  21. COMPOUNDED BACLOFEN [Suspect]
     Active Substance: BACLOFEN
     Dosage: 161.89 ?G, \DAY
     Dates: start: 20150727

REACTIONS (9)
  - Dizziness [Recovered/Resolved]
  - Fatigue [Recovered/Resolved]
  - Disorientation [Recovered/Resolved]
  - Urinary retention [Recovered/Resolved]
  - Sedation [Recovered/Resolved]
  - Pain [Recovered/Resolved]
  - Constipation [Recovered/Resolved]
  - Oedema [Recovered/Resolved]
  - Asthenia [Recovered/Resolved]

NARRATIVE: CASE EVENT DATE: 20150727
